FAERS Safety Report 8208492-7 (Version None)
Quarter: 2012Q1

REPORT INFORMATION
  Report Type: 
  Country: None (occurrence: None)
  Receive Date: 20120314
  Receipt Date: 20120305
  Transmission Date: 20120608
  Serious: Yes (Other)
  Sender: FDA-Public Use
  Company Number: US-JNJFOC-20120303024

PATIENT
  Sex: Female
  Weight: 58.97 kg

DRUGS (6)
  1. REMICADE [Suspect]
     Indication: COLITIS ULCERATIVE
     Route: 042
     Dates: start: 20120224
  2. ISONIAZID [Concomitant]
     Indication: TUBERCULOSIS
     Route: 048
     Dates: start: 20111201
  3. REMERON [Concomitant]
     Indication: DEPRESSION
     Route: 048
     Dates: start: 20090101
  4. VITAMIN B6 [Concomitant]
     Indication: TUBERCULOSIS
     Route: 048
     Dates: start: 20111201
  5. CITALOPRAM [Concomitant]
     Indication: ANXIETY
     Route: 048
     Dates: start: 20120101
  6. XANAX [Concomitant]
     Indication: ANXIETY
     Route: 048
     Dates: start: 20100101

REACTIONS (10)
  - SOMNOLENCE [None]
  - FEELING ABNORMAL [None]
  - GASTRIC DISORDER [None]
  - OEDEMA [None]
  - COLITIS ULCERATIVE [None]
  - EATING DISORDER [None]
  - DECREASED APPETITE [None]
  - HEADACHE [None]
  - NAUSEA [None]
  - FATIGUE [None]
